FAERS Safety Report 8643415 (Version 2)
Quarter: 2013Q2

REPORT INFORMATION
  Report Type: Spontaneous
  Country: US (occurrence: US)
  Receive Date: 20120629
  Receipt Date: 20130626
  Transmission Date: 20140414
  Serious: Yes (Hospitalization, Disabling, Other)
  Sender: FDA-Public Use
  Company Number: US-MPIJNJ-2012-03346

PATIENT
  Age: 52 Year
  Sex: Male
  Weight: 128.1 kg

DRUGS (17)
  1. VELCADE [Suspect]
     Indication: PLASMA CELL MYELOMA
     Dosage: 1.3 MG, CYCLIC
     Route: 058
     Dates: start: 20120307, end: 20120423
  2. VELCADE [Suspect]
     Dosage: UNK
     Dates: start: 20120503
  3. REVLIMID [Suspect]
     Indication: PRODUCT USED FOR UNKNOWN INDICATION
  4. DEXAMETHASONE [Suspect]
     Indication: PRODUCT USED FOR UNKNOWN INDICATION
  5. CYTOXAN [Suspect]
     Indication: PRODUCT USED FOR UNKNOWN INDICATION
  6. ETOPOSIDE [Suspect]
     Indication: PRODUCT USED FOR UNKNOWN INDICATION
  7. ZOMETA [Concomitant]
     Indication: HYPERCALCAEMIA
  8. RAMIPRIL [Concomitant]
     Indication: HYPERTENSION
     Dosage: 5 MG, UNK
  9. ALLOPURINOL [Concomitant]
     Indication: GOUT
     Dosage: 300 MG, UNK
  10. CATAPRES                           /00171101/ [Concomitant]
     Indication: HYPERTENSION
     Dosage: 0.3 MG, UNK
  11. METOPROLOL SUCCINATE [Concomitant]
     Indication: HYPERTENSION
     Dosage: 100 MG, UNK
  12. CYMBALTA [Concomitant]
     Indication: DEPRESSION
     Dosage: 90 MG, UNK
  13. DULOXETINE [Concomitant]
     Indication: PRODUCT USED FOR UNKNOWN INDICATION
     Dosage: 90 UNK, UNK
  14. ATIVAN [Concomitant]
     Indication: ANXIETY
     Dosage: 1 MG, PRN
  15. ASCRIPTIN [Concomitant]
     Indication: HYPERTENSION
     Dosage: 325 MG, UNK
  16. PERCOCET                           /00446701/ [Concomitant]
     Indication: PRODUCT USED FOR UNKNOWN INDICATION
     Dosage: UNK
  17. GLUCOPHAGE                         /00082701/ [Concomitant]
     Indication: PRODUCT USED FOR UNKNOWN INDICATION
     Dosage: 500 MG, UNK

REACTIONS (11)
  - Osteonecrosis [Unknown]
  - Mental status changes [Recovered/Resolved]
  - Musculoskeletal pain [Unknown]
  - Thrombocytopenia [Unknown]
  - Asthenia [Unknown]
  - Plasma cell myeloma [Recovering/Resolving]
  - Gait disturbance [Recovering/Resolving]
  - Pathological fracture [Recovering/Resolving]
  - Hypercalcaemia [Recovered/Resolved]
  - Fatigue [Recovered/Resolved]
  - Anaemia [Recovering/Resolving]
